FAERS Safety Report 5260750-4 (Version None)
Quarter: 2007Q1

REPORT INFORMATION
  Report Type: 
  Country: None (occurrence: None)
  Receive Date: 20070309
  Receipt Date: 20070223
  Transmission Date: 20070707
  Serious: Yes (Other)
  Sender: FDA-Public Use
  Company Number: CA-ELI_LILLY_AND_COMPANY-CA200702005463

PATIENT
  Age: 73 Year
  Sex: Female

DRUGS (5)
  1. EVISTA [Suspect]
     Indication: OSTEOPOROSIS
     Dosage: 60 MG, UNK
     Dates: start: 20061101, end: 20060101
  2. EVISTA [Suspect]
     Dosage: 60 MG, UNK
     Dates: start: 20070101, end: 20070101
  3. DIOVAN [Concomitant]
     Indication: HYPERTENSION
  4. TIAZAC [Concomitant]
     Indication: HYPERTENSION
  5. SYNTHROID [Concomitant]

REACTIONS (1)
  - SYSTOLIC HYPERTENSION [None]
